FAERS Safety Report 8236722-4 (Version None)
Quarter: 2012Q1

REPORT INFORMATION
  Report Type: 
  Country: None (occurrence: None)
  Receive Date: 20120309
  Receipt Date: 20110607
  Transmission Date: 20120608
  Serious: Yes (Hospitalization)
  Sender: FDA-Public Use
  Company Number: PHHY2011US51906

PATIENT
  Age: 26 Year
  Sex: Female

DRUGS (15)
  1. ETHINYL ESTRADIOL W/NORGESTREL (ETHINYLESTRADIOL, NORGESTREL) [Concomitant]
  2. OXCARBAZEPINE [Concomitant]
  3. PREGABALIN [Concomitant]
  4. CARBAMAZEPINE [Concomitant]
  5. INTERFERON BETA-1A [Concomitant]
  6. TOPIRAMATE [Concomitant]
  7. APROXEN (NAPROXEN) [Concomitant]
  8. CLONAZEPAM [Concomitant]
  9. DULOXETINE HYDROCHLORIDE [Concomitant]
  10. BUPROFEN (IBUPROFEN) [Concomitant]
  11. EXTAVIA [Suspect]
     Dosage: , SUBCUTANEOUS
     Route: 058
  12. EVETIRACETAM (LEVETIRACETAM) [Concomitant]
  13. IVALPROEX SODIUM (VALPROATE SEMISODIUM) [Concomitant]
  14. INTERFERON BETA-1A [Concomitant]
  15. NATALIZUMAB (NATALIZUMAB) [Concomitant]

REACTIONS (1)
  - MULTIPLE SCLEROSIS RELAPSE [None]
